FAERS Safety Report 5962908-5 (Version None)
Quarter: 2008Q4

REPORT INFORMATION
  Report Type: 
  Country: None (occurrence: None)
  Receive Date: 20081120
  Receipt Date: 20081120
  Transmission Date: 20090506
  Serious: Yes (Other)
  Sender: FDA-Public Use
  Company Number: None

PATIENT
  Sex: Female

DRUGS (1)
  1. LAMOTRIGINE [Suspect]
     Indication: EPILEPSY
     Dosage: 150 MG X 2 BID PO
     Route: 048
     Dates: start: 20080912, end: 20081112

REACTIONS (4)
  - DIPLOPIA [None]
  - DIZZINESS [None]
  - LETHARGY [None]
  - PRODUCT QUALITY ISSUE [None]
